FAERS Safety Report 9181109 (Version 1)
Quarter: 2013Q1

REPORT INFORMATION
  Report Type: Spontaneous
  Country: US (occurrence: US)
  Receive Date: 20130322
  Receipt Date: 20130322
  Transmission Date: 20140127
  Serious: No
  Sender: FDA-Public Use
  Company Number: US-MYLANLABS-2012S1005343

PATIENT
  Age: 49 Year
  Sex: Female

DRUGS (7)
  1. EMSAM [Suspect]
     Indication: MAJOR DEPRESSION
     Dosage: CHANGES EVERY 24 HOURS
     Route: 062
     Dates: start: 20120213
  2. EMSAM [Suspect]
     Indication: ANXIETY DISORDER
     Dosage: CHANGES EVERY 24 HOURS
     Route: 062
     Dates: start: 20120213
  3. EMSAM [Suspect]
     Indication: BIPOLAR DISORDER
     Dosage: CHANGES EVERY 24 HOURS
     Route: 062
     Dates: start: 20120213
  4. XANAX [Concomitant]
  5. LISINOPRIL [Concomitant]
  6. FLOVENT [Concomitant]
  7. ALBUTEROL [Concomitant]

REACTIONS (5)
  - Blood pressure decreased [Not Recovered/Not Resolved]
  - Dizziness [Not Recovered/Not Resolved]
  - Application site urticaria [Not Recovered/Not Resolved]
  - Application site pain [Not Recovered/Not Resolved]
  - Application site pruritus [Not Recovered/Not Resolved]
